FAERS Safety Report 6829488-3 (Version None)
Quarter: 2010Q3

REPORT INFORMATION
  Report Type: 
  Country: None (occurrence: None)
  Receive Date: 20100709
  Receipt Date: 20070314
  Transmission Date: 20110219
  Serious: No
  Sender: FDA-Public Use
  Company Number: US-PFIZER INC-2007006931

PATIENT
  Sex: Male
  Weight: 88 kg

DRUGS (2)
  1. CHANTIX [Suspect]
     Indication: SMOKING CESSATION THERAPY
     Route: 048
     Dates: start: 20070111
  2. VITAMINS [Concomitant]

REACTIONS (4)
  - BURNING SENSATION [None]
  - ERYTHEMA [None]
  - GAIT DISTURBANCE [None]
  - PAIN IN EXTREMITY [None]
